FAERS Safety Report 20228062 (Version 10)
Quarter: 2024Q2

REPORT INFORMATION
  Report Type: Spontaneous
  Country: US (occurrence: US)
  Receive Date: 20211224
  Receipt Date: 20240607
  Transmission Date: 20240716
  Serious: Yes (Hospitalization, Other)
  Sender: FDA-Public Use
  Company Number: US-INCYTE CORPORATION-2021IN011785

PATIENT

DRUGS (32)
  1. JAKAFI [Suspect]
     Active Substance: RUXOLITINIB
     Indication: Non-Hodgkin^s lymphoma
     Dosage: 5 MILLIGRAM, BID
     Route: 048
     Dates: start: 20210623
  2. JAKAFI [Suspect]
     Active Substance: RUXOLITINIB
     Dosage: 5 MILLIGRAM, BID
     Route: 048
  3. JAKAFI [Suspect]
     Active Substance: RUXOLITINIB
     Dosage: 5 MILLIGRAM, BID
     Route: 048
  4. JAKAFI [Suspect]
     Active Substance: RUXOLITINIB
     Dosage: 5 MILLIGRAM, BID
     Route: 048
  5. JAKAFI [Suspect]
     Active Substance: RUXOLITINIB
     Dosage: 5 MILLIGRAM, BID
     Route: 048
  6. JAKAFI [Suspect]
     Active Substance: RUXOLITINIB
     Dosage: 5 MILLIGRAM, BID
     Route: 048
  7. JAKAFI [Suspect]
     Active Substance: RUXOLITINIB
     Dosage: 5 MILLIGRAM, BID
     Route: 048
  8. JAKAFI [Suspect]
     Active Substance: RUXOLITINIB
     Dosage: 5 MILLIGRAM, BID
     Route: 048
  9. TACROLIMUS [Suspect]
     Active Substance: TACROLIMUS
     Indication: Product used for unknown indication
     Dosage: 0.5 MILLIGRAM
     Route: 065
     Dates: end: 202405
  10. CALQUENCE [Suspect]
     Active Substance: ACALABRUTINIB
     Indication: Product used for unknown indication
     Dosage: 100 MILLIGRAM
     Route: 065
  11. PREDNISONE [Suspect]
     Active Substance: PREDNISONE
     Indication: Product used for unknown indication
     Route: 065
  12. MEDROL [Suspect]
     Active Substance: METHYLPREDNISOLONE
     Indication: Product used for unknown indication
     Route: 065
  13. ACETAMINOPHEN [Concomitant]
     Active Substance: ACETAMINOPHEN
     Indication: Product used for unknown indication
     Dosage: 500 MILLIGRAM
     Route: 065
  14. ENULOSE [Concomitant]
     Active Substance: LACTULOSE
     Indication: Product used for unknown indication
     Dosage: 10GM/15ML
     Route: 065
  15. ADDERALL [Concomitant]
     Active Substance: AMPHETAMINE ASPARTATE\AMPHETAMINE SULFATE\DEXTROAMPHETAMINE SACCHARATE\DEXTROAMPHETAMINE SULFATE
     Indication: Product used for unknown indication
     Dosage: 10 MILLIGRAM
     Route: 065
  16. MAGNESIUM [Concomitant]
     Active Substance: MAGNESIUM
     Indication: Product used for unknown indication
     Dosage: 500 MILLIGRAM
     Route: 065
  17. DOCUSATE SOD [Concomitant]
     Indication: Product used for unknown indication
     Dosage: 250 MILLIGRAM
     Route: 065
  18. VITAMIN D NOS [Concomitant]
     Active Substance: CHOLECALCIFEROL\ERGOCALCIFEROL
     Indication: Product used for unknown indication
     Dosage: 25MCG(1000
     Route: 065
  19. TUMS [Concomitant]
     Active Substance: CALCIUM CARBONATE
     Indication: Product used for unknown indication
     Dosage: 500 MILLIGRAM
     Route: 065
  20. DEXTROAMPHETAMINE [Concomitant]
     Active Substance: DEXTROAMPHETAMINE
     Indication: Product used for unknown indication
     Dosage: 15 MILLIGRAM CP2
     Route: 065
  21. HYDROCODONE [Concomitant]
     Active Substance: HYDROCODONE
     Indication: Product used for unknown indication
     Dosage: 7.5-325M
     Route: 065
  22. MONTELUKAST [Concomitant]
     Active Substance: MONTELUKAST SODIUM
     Indication: Product used for unknown indication
     Dosage: 10 MILLIGRAM
     Route: 065
  23. NOVOLIN N [Concomitant]
     Active Substance: INSULIN HUMAN
     Indication: Product used for unknown indication
     Dosage: 100 UNITS/ML
     Route: 065
  24. OZEMPIC [Concomitant]
     Active Substance: SEMAGLUTIDE
     Indication: Product used for unknown indication
     Dosage: 0.2 SOP 2MG/1.5M
     Route: 065
  25. PANTOPRAZOLE [Concomitant]
     Active Substance: PANTOPRAZOLE
     Indication: Product used for unknown indication
     Dosage: 40 MILLIGRAM
     Route: 065
  26. POSACONAZOLE [Concomitant]
     Active Substance: POSACONAZOLE
     Indication: Product used for unknown indication
     Dosage: 100 MILLIGRAM TBE
     Route: 065
  27. ROSUVASTATIN CALCIUM [Concomitant]
     Active Substance: ROSUVASTATIN CALCIUM
     Indication: Product used for unknown indication
     Dosage: 5 MILLIGRAM
     Route: 065
  28. HYDROCHLOROTHIAZIDE [Concomitant]
     Active Substance: HYDROCHLOROTHIAZIDE
     Indication: Product used for unknown indication
     Dosage: 25 MILLIGRAM
     Route: 065
  29. VITAMIN B6 [Concomitant]
     Active Substance: PYRIDOXINE HYDROCHLORIDE
     Indication: Product used for unknown indication
     Dosage: 250 MILLIGRAM
     Route: 065
  30. INSULIN NOS [Concomitant]
     Active Substance: INSULIN NOS
     Indication: Product used for unknown indication
     Route: 065
  31. GUAR GUM [Concomitant]
     Active Substance: GUAR GUM
     Indication: Product used for unknown indication
     Route: 065
  32. TESTOSTERONE [Concomitant]
     Active Substance: TESTOSTERONE
     Indication: Product used for unknown indication
     Dosage: 200MG/ML
     Route: 065

REACTIONS (70)
  - COVID-19 [Unknown]
  - Nephrolithiasis [Recovering/Resolving]
  - Prostatomegaly [Unknown]
  - Bone marrow disorder [Unknown]
  - Volvulus [Unknown]
  - Narcolepsy [Unknown]
  - Neuropathy peripheral [Unknown]
  - Joint instability [Unknown]
  - Gingival pain [Unknown]
  - Gingival bleeding [Unknown]
  - Memory impairment [Unknown]
  - Fall [Unknown]
  - Fatigue [Unknown]
  - Constipation [Recovered/Resolved]
  - Dizziness [Unknown]
  - Coccydynia [Unknown]
  - Musculoskeletal pain [Unknown]
  - Pruritus [Unknown]
  - Amnesia [Unknown]
  - Swelling [Unknown]
  - Hypersensitivity [Unknown]
  - Brain fog [Unknown]
  - Blood creatinine increased [Unknown]
  - Glomerular filtration rate decreased [Unknown]
  - Faeces soft [Unknown]
  - Blood creatinine abnormal [Unknown]
  - Dyspnoea [Unknown]
  - Thinking abnormal [Unknown]
  - Asthenia [Unknown]
  - Somnolence [Unknown]
  - Malaise [Unknown]
  - Nasal crusting [Unknown]
  - Sinus disorder [Unknown]
  - Ageusia [Unknown]
  - Weight fluctuation [Unknown]
  - Appetite disorder [Unknown]
  - Balance disorder [Unknown]
  - Muscle spasms [Unknown]
  - Pain [Unknown]
  - Discouragement [Unknown]
  - Decreased activity [Unknown]
  - Time perception altered [Unknown]
  - Attention deficit hyperactivity disorder [Unknown]
  - Ill-defined disorder [Unknown]
  - Diarrhoea [Unknown]
  - Neoplasm [Unknown]
  - Dizziness postural [Unknown]
  - Product dose omission in error [Unknown]
  - Product dose omission issue [Unknown]
  - Rib fracture [Unknown]
  - Blood pressure fluctuation [Unknown]
  - Vertigo positional [Unknown]
  - Respiratory syncytial virus infection [Unknown]
  - Vision blurred [Unknown]
  - Blood glucose increased [Unknown]
  - Gastrooesophageal reflux disease [Unknown]
  - Blood immunoglobulin A decreased [Unknown]
  - Blood immunoglobulin G decreased [Unknown]
  - Blood immunoglobulin M decreased [Unknown]
  - Disturbance in attention [Unknown]
  - Blood uric acid increased [Unknown]
  - Red blood cell count decreased [Unknown]
  - Haemoglobin decreased [Unknown]
  - Haematocrit decreased [Unknown]
  - Platelet count decreased [Unknown]
  - Mean platelet volume increased [Unknown]
  - Blood testosterone decreased [Unknown]
  - Myalgia [Unknown]
  - Back pain [Unknown]
  - Off label use [Unknown]

NARRATIVE: CASE EVENT DATE: 20210623
